FAERS Safety Report 7391082-6 (Version None)
Quarter: 2011Q2

REPORT INFORMATION
  Report Type: 
  Country: None (occurrence: None)
  Receive Date: 20110404
  Receipt Date: 20110325
  Transmission Date: 20111010
  Serious: Yes (Hospitalization)
  Sender: FDA-Public Use
  Company Number: FR-JNJFOC-20110312170

PATIENT
  Sex: Male

DRUGS (2)
  1. NORSET [Concomitant]
  2. RISPERDAL CONSTA [Suspect]
     Indication: SCHIZOAFFECTIVE DISORDER
     Route: 050

REACTIONS (1)
  - LUNG NEOPLASM MALIGNANT [None]
